FAERS Safety Report 6524259-X (Version None)
Quarter: 2009Q4

REPORT INFORMATION
  Report Type: 
  Country: None (occurrence: None)
  Receive Date: 20091230
  Receipt Date: 20091230
  Transmission Date: 20100525
  Serious: No
  Sender: FDA-Public Use
  Company Number: None

PATIENT
  Age: 25 Year
  Sex: Female
  Weight: 93.4 kg

DRUGS (8)
  1. HYDROMORPHONE HCL [Suspect]
     Indication: PAIN
     Dosage: PCA 0/0.4/10
     Dates: start: 20091020
  2. ALBUTEROL [Concomitant]
  3. HEPARIN [Concomitant]
  4. CEFAZOLIN [Concomitant]
  5. ERYTHROMYCIN [Concomitant]
  6. LANSOPRAZOLE [Concomitant]
  7. LEVOFLOXACIN [Concomitant]
  8. TRIAMCINOLONE [Concomitant]

REACTIONS (1)
  - SOMNOLENCE [None]
